FAERS Safety Report 12584903 (Version 1)
Quarter: 2016Q3

REPORT INFORMATION
  Report Type: Spontaneous
  Country: US (occurrence: US)
  Receive Date: 20160722
  Receipt Date: 20160722
  Transmission Date: 20161109
  Serious: No
  Sender: FDA-Public Use
  Company Number: US-ASTRAZENECA-2016SE77735

PATIENT
  Age: 19230 Day
  Sex: Female
  Weight: 63.9 kg

DRUGS (9)
  1. FEMARA [Concomitant]
     Active Substance: LETROZOLE
     Route: 048
     Dates: start: 20151217
  2. IBRANCE [Suspect]
     Active Substance: PALBOCICLIB
     Indication: BREAST CANCER METASTATIC
     Route: 048
     Dates: start: 20160114
  3. XGEVA [Concomitant]
     Active Substance: DENOSUMAB
     Route: 058
     Dates: start: 20151217
  4. ZOLADEX [Suspect]
     Active Substance: GOSERELIN ACETATE
     Dosage: 3.6MG UNKNOWN
     Route: 058
     Dates: start: 20151217
  5. TAMOXIFEN [Suspect]
     Active Substance: TAMOXIFEN
     Dosage: UNKNOWN
     Route: 048
  6. LATROZOLE [Concomitant]
  7. ZOLOFT [Concomitant]
     Active Substance: SERTRALINE HYDROCHLORIDE
     Route: 048
     Dates: start: 20120229
  8. ADDERALL [Concomitant]
     Active Substance: AMPHETAMINE ASPARTATE\AMPHETAMINE SULFATE\DEXTROAMPHETAMINE SACCHARATE\DEXTROAMPHETAMINE SULFATE
     Dosage: TAKE 1 TABLET EVERY DAY BEFORE BREAKFAST
     Route: 048
     Dates: end: 20160512
  9. FASLODEX [Concomitant]
     Active Substance: FULVESTRANT
     Dosage: INTRAMUSCULAR ROUTE EVERY MONTH AS 2 EQUALLY DIVIDED INJECTIONS, ONE IN EACH BUTTOCK, OVER
     Route: 030
     Dates: start: 20151217

REACTIONS (9)
  - Nausea [Unknown]
  - Stomatitis [Unknown]
  - Fatigue [Unknown]
  - Depression [Unknown]
  - Neutrophil count decreased [Unknown]
  - Bone pain [Unknown]
  - Drug intolerance [Unknown]
  - Gingival swelling [Unknown]
  - Hot flush [Unknown]

NARRATIVE: CASE EVENT DATE: 20160210
